FAERS Safety Report 19780092 (Version 1)
Quarter: 2021Q3

REPORT INFORMATION
  Report Type: Spontaneous
  Country: US (occurrence: US)
  Receive Date: 20210902
  Receipt Date: 20210902
  Transmission Date: 20211014
  Serious: No
  Sender: FDA-Public Use
  Company Number: US-MYLANLABS-2021M1056038

PATIENT
  Sex: Female
  Weight: 91 kg

DRUGS (2)
  1. XULANE [Suspect]
     Active Substance: ETHINYL ESTRADIOL\NORELGESTROMIN
     Indication: HEAVY MENSTRUAL BLEEDING
     Dosage: UNK
     Route: 062
  2. XULANE [Suspect]
     Active Substance: ETHINYL ESTRADIOL\NORELGESTROMIN
     Indication: UTERINE LEIOMYOMA
     Dosage: TRANSDERMAL PATCH
     Route: 062

REACTIONS (2)
  - Off label use [Unknown]
  - Product adhesion issue [Unknown]
